FAERS Safety Report 4701603-7 (Version None)
Quarter: 2005Q2

REPORT INFORMATION
  Report Type: 
  Country: None (occurrence: None)
  Receive Date: 20050627
  Receipt Date: 20050615
  Transmission Date: 20051028
  Serious: Yes (Death, Life-Threatening, Hospitalization)
  Sender: FDA-Public Use
  Company Number: 2005076167

PATIENT
  Age: 53 Year
  Sex: Female
  Weight: 52 kg

DRUGS (5)
  1. LYRICA [Suspect]
     Indication: NEUROPATHIC PAIN
     Dosage: 300 MG (150 MG, BID INTERVAL: DAILY), ORAL
     Route: 048
     Dates: start: 20050502, end: 20050510
  2. PARAPLATIN [Concomitant]
  3. BETAPRED [Concomitant]
  4. DIFLUCAN [Concomitant]
  5. CYKLOKAPRON [Concomitant]

REACTIONS (2)
  - HAEMORRHAGE [None]
  - THROMBOCYTOPENIA [None]
